FAERS Safety Report 4285488-1 (Version None)
Quarter: 2004Q1

REPORT INFORMATION
  Report Type: 
  Country: None (occurrence: None)
  Receive Date: 20040202
  Receipt Date: 20040117
  Transmission Date: 20041129
  Serious: Yes (Hospitalization)
  Sender: FDA-Public Use
  Company Number: 186732

PATIENT
  Age: 56 Year
  Sex: Female
  Weight: 78.0187 kg

DRUGS (7)
  1. AVONEX [Suspect]
     Indication: MULTIPLE SCLEROSIS
     Dosage: 30 MCG QW IM
     Route: 030
     Dates: start: 19990101, end: 20031001
  2. AVONEX [Suspect]
     Indication: MULTIPLE SCLEROSIS
     Dosage: 30 MCG QW IM
     Route: 030
     Dates: start: 20031001, end: 20040107
  3. AVONEX [Suspect]
     Indication: MULTIPLE SCLEROSIS
     Dosage: 7.5 MCG QW IM
     Route: 030
     Dates: start: 20040107
  4. HIGH BLOOD PRESSURE MEDICATION [Concomitant]
  5. PREMARIN [Concomitant]
  6. VITAMINS NOS [Concomitant]
  7. ZESTRIL [Concomitant]

REACTIONS (8)
  - ASTHENIA [None]
  - FEELING ABNORMAL [None]
  - FEELING HOT [None]
  - INFLAMMATION [None]
  - INFLUENZA LIKE ILLNESS [None]
  - POLLAKIURIA [None]
  - SCIATIC NERVE INJURY [None]
  - VISION BLURRED [None]
